FAERS Safety Report 9697036 (Version 2)
Quarter: 2014Q1

REPORT INFORMATION
  Report Type: Spontaneous
  Country: FR (occurrence: FR)
  Receive Date: 20131120
  Receipt Date: 20140103
  Transmission Date: 20141002
  Serious: Yes (Hospitalization, Other)
  Sender: FDA-Public Use
  Company Number: FR-PFIZER INC-2013323145

PATIENT
  Age: 53 Year
  Sex: Male

DRUGS (7)
  1. ARACYTINE [Suspect]
     Indication: ACUTE MYELOID LEUKAEMIA
     Dosage: UNK
     Dates: start: 20130422
  2. ARACYTINE [Suspect]
     Dosage: 3 MG/M2 AT DAY 1, DAY 3, DAY 5 AND DAY 7
     Dates: start: 20130829
  3. ZAVEDOS [Suspect]
     Indication: ACUTE MYELOID LEUKAEMIA
     Dosage: UNK
     Dates: start: 20130422
  4. ZAVEDOS [Suspect]
     Dosage: 12 MG/M2, ON DAY 1 DAY 2 AND DAY 3
     Dates: start: 20130829
  5. CARDENSIEL [Concomitant]
     Dosage: UNK
  6. SEROPRAM [Concomitant]
     Dosage: UNK
  7. IMOVANE [Concomitant]
     Dosage: UNK

REACTIONS (2)
  - Purpura [Recovered/Resolved]
  - Pancytopenia [Unknown]
